FAERS Safety Report 6320825-5 (Version None)
Quarter: 2009Q3

REPORT INFORMATION
  Report Type: 
  Country: None (occurrence: None)
  Receive Date: 20090822
  Receipt Date: 20081208
  Transmission Date: 20100115
  Serious: No
  Sender: FDA-Public Use
  Company Number: US-ABBOTT-08P-163-0491917-00

PATIENT
  Sex: Female

DRUGS (4)
  1. NIASPAN [Suspect]
     Indication: DRUG USE FOR UNKNOWN INDICATION
     Dosage: (500MG X 2 WEEKS) THEN
     Route: 048
     Dates: start: 20081124
  2. NIASPAN [Suspect]
  3. VIT D [Concomitant]
     Indication: DRUG USE FOR UNKNOWN INDICATION
  4. IBUPROFEN [Concomitant]
     Indication: DRUG USE FOR UNKNOWN INDICATION

REACTIONS (4)
  - CONSTIPATION [None]
  - DIZZINESS [None]
  - FLUSHING [None]
  - PALPITATIONS [None]
